FAERS Safety Report 22005093 (Version 1)
Quarter: 2023Q1

REPORT INFORMATION
  Report Type: Spontaneous
  Country: US (occurrence: US)
  Receive Date: 20230217
  Receipt Date: 20230217
  Transmission Date: 20230417
  Serious: Yes (Death, Hospitalization, Other)
  Sender: FDA-Public Use
  Company Number: US-STERISCIENCE B.V.-2023-ST-000631

PATIENT
  Age: 8 Year
  Sex: Female

DRUGS (13)
  1. VANCOMYCIN [Suspect]
     Active Substance: VANCOMYCIN
     Indication: Interstitial lung disease
     Dosage: 15 MILLIGRAM/KILOGRAM, Q6H
     Route: 065
  2. MEROPENEM [Suspect]
     Active Substance: MEROPENEM
     Indication: Interstitial lung disease
     Dosage: 20 MILLIGRAM/KILOGRAM, Q8H
     Route: 065
  3. METHYLPREDNISOLONE [Suspect]
     Active Substance: METHYLPREDNISOLONE
     Indication: Dermatomyositis
     Dosage: 30 MILLIGRAM/KILOGRAM,STARTED 15 DAYS AFTER THE INITIAL DIAGNOSIS (DAY 1 OF THE HOSPITALISATION).
     Route: 065
  4. METHYLPREDNISOLONE [Suspect]
     Active Substance: METHYLPREDNISOLONE
     Indication: Interstitial lung disease
     Dosage: HIGH-DOSE METHYLPREDNISOLONE 30 MG/KG ON DAY 4 OF THE HOSPITALISATION
  5. POLYMYXIN B [Suspect]
     Active Substance: POLYMYXIN B
     Indication: Interstitial lung disease
     Dosage: UNKNOWN
     Route: 065
  6. NITRIC OXIDE [Suspect]
     Active Substance: NITRIC OXIDE
     Indication: Product used for unknown indication
     Dosage: UNKNOWN
     Route: 065
  7. PRIVIGEN [Suspect]
     Active Substance: HUMAN IMMUNOGLOBULIN G
     Indication: Interstitial lung disease
     Dosage: 2 GRAM PER KILOGRAM
     Route: 042
  8. PRIVIGEN [Suspect]
     Active Substance: HUMAN IMMUNOGLOBULIN G
     Dosage: 400 MILLIGRAM/KILOGRAM (400 MG/KG (10 G/DOSE))
     Route: 042
  9. TACROLIMUS [Suspect]
     Active Substance: TACROLIMUS
     Indication: Interstitial lung disease
     Dosage: 1.25 MILLIGRAM, BID
     Route: 065
  10. RITUXIMAB [Suspect]
     Active Substance: RITUXIMAB
     Indication: Interstitial lung disease
     Dosage: 375 MILLIGRAM, QMINUTE
     Route: 065
  11. CYCLOPHOSPHAMIDE [Suspect]
     Active Substance: CYCLOPHOSPHAMIDE
     Indication: Interstitial lung disease
     Dosage: 15 MILLIGRAM/KILOGRAM, QD
     Route: 065
  12. METHOTREXATE [Concomitant]
     Active Substance: METHOTREXATE
     Indication: Dermatomyositis
     Dosage: UNKNOWN
     Route: 065
  13. POLYMYXIN B [Suspect]
     Active Substance: POLYMYXIN B
     Indication: Interstitial lung disease
     Dosage: UNK

REACTIONS (1)
  - Drug ineffective for unapproved indication [Fatal]
